FAERS Safety Report 24532968 (Version 3)
Quarter: 2025Q1

REPORT INFORMATION
  Report Type: Report from Study
  Country: US (occurrence: US)
  Receive Date: 20241022
  Receipt Date: 20250210
  Transmission Date: 20250409
  Serious: Yes (Hospitalization)
  Sender: TAKEDA
  Company Number: US-TAKEDA-2022TUS093552

PATIENT
  Age: 56 Year
  Sex: Female
  Weight: 52 kg

DRUGS (30)
  1. GLASSIA [Suspect]
     Active Substance: .ALPHA.1-PROTEINASE INHIBITOR HUMAN
     Indication: Alpha-1 antitrypsin deficiency
     Dosage: 60 MILLIGRAM/KILOGRAM, 1/WEEK
     Dates: start: 20221114
  2. GLASSIA [Suspect]
     Active Substance: .ALPHA.1-PROTEINASE INHIBITOR HUMAN
     Dosage: 60 MILLIGRAM/KILOGRAM, 1/WEEK
     Dates: start: 20221201
  3. HEPARIN [Concomitant]
     Active Substance: HEPARIN SODIUM
  4. DIPHENHYDRAMINE [Concomitant]
     Active Substance: DIPHENHYDRAMINE
  5. BUPROPION HYDROCHLORIDE XL [Concomitant]
     Active Substance: BUPROPION HYDROCHLORIDE
  6. CLARITIN [Concomitant]
     Active Substance: LORATADINE
  7. EPINEPHRINE [Concomitant]
     Active Substance: EPINEPHRINE
  8. SODIUM CHLORIDE [Concomitant]
     Active Substance: SODIUM CHLORIDE
  9. NYSTATIN [Concomitant]
     Active Substance: NYSTATIN
  10. TRAZODONE HCL [Concomitant]
     Active Substance: TRAZODONE HYDROCHLORIDE
  11. FIORICET [Concomitant]
     Active Substance: ACETAMINOPHEN\BUTALBITAL\CAFFEINE
  12. PREDNISONE [Concomitant]
     Active Substance: PREDNISONE
  13. OMEPRAZOLE [Concomitant]
     Active Substance: OMEPRAZOLE
  14. CALCIUM [Concomitant]
     Active Substance: CALCIUM
  15. GABAPENTIN [Concomitant]
     Active Substance: GABAPENTIN
  16. LORATADINE [Concomitant]
     Active Substance: LORATADINE
  17. ADDERALL [Concomitant]
     Active Substance: AMPHETAMINE ASPARTATE\AMPHETAMINE SULFATE\DEXTROAMPHETAMINE SACCHARATE\DEXTROAMPHETAMINE SULFATE
  18. TACROLIMUS [Concomitant]
     Active Substance: TACROLIMUS
  19. MONTELUKAST [Concomitant]
     Active Substance: MONTELUKAST
  20. VALACYCLOVIR [Concomitant]
     Active Substance: VALACYCLOVIR HYDROCHLORIDE
  21. MYCOPHENOLIC ACID [Concomitant]
     Active Substance: MYCOPHENOLIC ACID
  22. BENADRYL [Concomitant]
     Active Substance: DIPHENHYDRAMINE HYDROCHLORIDE
  23. DOXYCYCLINE HYCLATE [Concomitant]
     Active Substance: DOXYCYCLINE HYCLATE
  24. BUPROPION [Concomitant]
     Active Substance: BUPROPION
  25. MONTELUKAST SODIUM [Concomitant]
     Active Substance: MONTELUKAST SODIUM
  26. BIOFREEZE [Concomitant]
     Active Substance: MENTHOL
  27. SIROLIMUS [Concomitant]
     Active Substance: SIROLIMUS
  28. QELBREE [Concomitant]
     Active Substance: VILOXAZINE HYDROCHLORIDE
  29. LEXAPRO [Concomitant]
     Active Substance: ESCITALOPRAM OXALATE
  30. DIPHENHYDRAMINE HYDROCHLORIDE [Concomitant]
     Active Substance: DIPHENHYDRAMINE HYDROCHLORIDE

REACTIONS (27)
  - Pyrexia [Unknown]
  - Bronchitis [Unknown]
  - Menstrual disorder [Unknown]
  - Rhinovirus infection [Unknown]
  - Productive cough [Unknown]
  - Neck pain [Unknown]
  - Seasonal allergy [Unknown]
  - Sinus congestion [Recovering/Resolving]
  - Blood pressure decreased [Recovering/Resolving]
  - Catheter site pain [Unknown]
  - Head injury [Unknown]
  - Muscle strain [Unknown]
  - Fall [Unknown]
  - Skin abrasion [Unknown]
  - Faeces soft [Unknown]
  - Product dose omission issue [Unknown]
  - Migraine [Recovered/Resolved]
  - Somnolence [Recovering/Resolving]
  - Vomiting [Unknown]
  - Diarrhoea [Unknown]
  - Sinusitis [Recovering/Resolving]
  - Back pain [Unknown]
  - Rash [Unknown]
  - Dyspnoea [Unknown]
  - Fatigue [Recovering/Resolving]
  - Headache [Recovering/Resolving]
  - Nausea [Unknown]

NARRATIVE: CASE EVENT DATE: 20230311
